FAERS Safety Report 18113320 (Version 2)
Quarter: 2020Q3

REPORT INFORMATION
  Report Type: Spontaneous
  Country: US (occurrence: US)
  Receive Date: 20200805
  Receipt Date: 20200811
  Transmission Date: 20201103
  Serious: No
  Sender: FDA-Public Use
  Company Number: US-PFIZER INC-2019472752

PATIENT
  Age: 15 Year
  Sex: Female

DRUGS (2)
  1. XELJANZ [Suspect]
     Active Substance: TOFACITINIB CITRATE
     Indication: ALOPECIA AREATA
     Dosage: 5 MG, UNK
  2. XELJANZ [Suspect]
     Active Substance: TOFACITINIB CITRATE
     Dosage: UNK (5 MG)
     Dates: start: 20200803

REACTIONS (5)
  - Off label use [Unknown]
  - Drug effective for unapproved indication [Unknown]
  - Infection [Unknown]
  - Product use issue [Unknown]
  - Product use in unapproved indication [Unknown]
